FAERS Safety Report 5811090-3 (Version None)
Quarter: 2008Q3

REPORT INFORMATION
  Report Type: 
  Country: None (occurrence: None)
  Receive Date: 20080710
  Receipt Date: 20080624
  Transmission Date: 20090109
  Serious: Yes (Hospitalization)
  Sender: FDA-Public Use
  Company Number: DSA_32077_2008

PATIENT
  Age: 80 Year
  Sex: Male

DRUGS (5)
  1. ENALAPRIL MALEATE AND HYDROCHLOROTHIAZIDE [Suspect]
     Indication: HYPERTENSION
     Dosage: 1 DF QD 20-12.5 MG ORAL
     Route: 048
     Dates: start: 20040101, end: 20080411
  2. ASPIRIN [Concomitant]
  3. CARVEDILOL [Concomitant]
  4. ISCOVER [Concomitant]
  5. OMEPRAZOLE [Concomitant]

REACTIONS (2)
  - HYPONATRAEMIA [None]
  - SYNCOPE [None]
